FAERS Safety Report 23959245 (Version 1)
Quarter: 2024Q2

REPORT INFORMATION
  Report Type: Spontaneous
  Country: DE (occurrence: DE)
  Receive Date: 20240611
  Receipt Date: 20240611
  Transmission Date: 20240715
  Serious: Yes (Hospitalization)
  Sender: FDA-Public Use
  Company Number: DE-BIOVITRUM-2024-DE-008385

PATIENT
  Sex: Male

DRUGS (1)
  1. KINERET [Suspect]
     Active Substance: ANAKINRA
     Indication: Product used for unknown indication
     Dosage: DOSE WAS INCREASED FROM 100 TO 500 MG/D

REACTIONS (5)
  - Body temperature increased [Unknown]
  - Platelet count abnormal [Unknown]
  - Aspartate aminotransferase abnormal [Unknown]
  - Fibrin D dimer increased [Unknown]
  - Off label use [Unknown]
